FAERS Safety Report 15796573 (Version 1)
Quarter: 2019Q1

REPORT INFORMATION
  Report Type: Report from Study
  Country: None (occurrence: CY)
  Receive Date: 20190108
  Receipt Date: 20190108
  Transmission Date: 20190417
  Serious: Yes (Other)
  Sender: FDA-Public Use
  Company Number: CY-ABBVIE-19S-041-2611706-00

PATIENT
  Age: 71 Year
  Sex: Female

DRUGS (5)
  1. KORANDIL [Concomitant]
     Indication: PRODUCT USED FOR UNKNOWN INDICATION
     Route: 048
  2. SETININ [Concomitant]
     Active Substance: QUETIAPINE FUMARATE
     Indication: HALLUCINATION
     Dosage: (TWO AT MORNING; ONE AT NOON; 2 AT NIGHT) DAILY
     Route: 048
  3. MEDOSTATIN [Concomitant]
     Indication: BLOOD CHOLESTEROL ABNORMAL
     Route: 048
  4. DUODOPA [Suspect]
     Active Substance: CARBIDOPA\LEVODOPA
     Dosage: MD:7.2ML; CR:2.3ML/H; ED:1.2ML
     Route: 050
     Dates: start: 20190102
  5. DUODOPA [Suspect]
     Active Substance: CARBIDOPA\LEVODOPA
     Indication: PARKINSON^S DISEASE
     Route: 050
     Dates: start: 20160906, end: 20181220

REACTIONS (3)
  - Device dislocation [Unknown]
  - Gastrostomy [Recovered/Resolved]
  - Device occlusion [Unknown]

NARRATIVE: CASE EVENT DATE: 20190102
